FAERS Safety Report 7119144-9 (Version None)
Quarter: 2010Q4

REPORT INFORMATION
  Report Type: 
  Country: None (occurrence: None)
  Receive Date: 20101123
  Receipt Date: 20100609
  Transmission Date: 20110411
  Serious: No
  Sender: FDA-Public Use
  Company Number: US-MYLANLABS-2010S1010391

PATIENT
  Age: 82 Year
  Sex: Female
  Weight: 77.11 kg

DRUGS (1)
  1. AMLODIPINE BESYLATE [Suspect]
     Indication: BLOOD PRESSURE INCREASED
     Route: 048
     Dates: start: 20100501, end: 20100501

REACTIONS (2)
  - GLOSSODYNIA [None]
  - ORAL DISCOMFORT [None]
